FAERS Safety Report 9581334 (Version 1)
Quarter: 2013Q4

REPORT INFORMATION
  Report Type: Spontaneous
  Country: US (occurrence: US)
  Receive Date: 20131002
  Receipt Date: 20131002
  Transmission Date: 20140711
  Serious: Yes (Other)
  Sender: FDA-Public Use
  Company Number: US-GLAXOSMITHKLINE-A1043480A

PATIENT
  Age: 88 Year
  Sex: Female

DRUGS (12)
  1. ADVAIR [Suspect]
     Indication: PULMONARY FIBROSIS
     Dosage: 1PUFF TWICE PER DAY
     Route: 055
     Dates: start: 201309
  2. DEXILANT [Concomitant]
  3. METOPROLOL [Concomitant]
  4. LORATADINE [Concomitant]
  5. CENTRUM SILVER [Concomitant]
  6. VITAMIN D [Concomitant]
  7. VITAMIN C [Concomitant]
  8. PRAVASTATIN [Concomitant]
  9. EVISTA [Concomitant]
  10. LORAZEPAM [Concomitant]
  11. MOUTHWASH [Concomitant]
  12. NITROFURANTOIN [Concomitant]
     Indication: PROPHYLAXIS URINARY TRACT INFECTION

REACTIONS (5)
  - Candida infection [Not Recovered/Not Resolved]
  - Dysphonia [Not Recovered/Not Resolved]
  - Dysphonia [Not Recovered/Not Resolved]
  - Tongue coated [Not Recovered/Not Resolved]
  - Off label use [Not Recovered/Not Resolved]
